FAERS Safety Report 5160109-4 (Version None)
Quarter: 2006Q4

REPORT INFORMATION
  Report Type: 
  Country: None (occurrence: None)
  Receive Date: 20061129
  Receipt Date: 20060802
  Transmission Date: 20070319
  Serious: Yes (Other)
  Sender: FDA-Public Use
  Company Number: CA-GLAXOSMITHKLINE-A0616979A

PATIENT
  Age: 71 Year
  Sex: Female

DRUGS (10)
  1. GAVISCON [Suspect]
     Route: 048
     Dates: start: 20060501
  2. GAVISCON [Suspect]
     Route: 048
  3. AGGRENOX [Concomitant]
  4. FLOVENT [Concomitant]
     Route: 055
  5. APO-FUROSEMIDE [Concomitant]
  6. UNSPECIFIED MEDICATION [Concomitant]
  7. SYNTHROID [Concomitant]
  8. LIPITOR [Concomitant]
  9. ALBUTEROL [Concomitant]
  10. NITRO-DUR [Concomitant]

REACTIONS (3)
  - ABDOMINAL PAIN UPPER [None]
  - SEPSIS [None]
  - STOMACH DISCOMFORT [None]
